FAERS Safety Report 5002962-0 (Version None)
Quarter: 2006Q2

REPORT INFORMATION
  Report Type: 
  Country: None (occurrence: None)
  Receive Date: 20060516
  Receipt Date: 20060506
  Transmission Date: 20061013
  Serious: Yes (Other)
  Sender: FDA-Public Use
  Company Number: GB-GLAXOSMITHKLINE-B0422991A

PATIENT
  Age: 63 Year
  Sex: Male

DRUGS (1)
  1. NIQUITIN CQ 21MG [Suspect]
     Dosage: 21MG PER DAY
     Route: 062
     Dates: start: 20060321, end: 20060323

REACTIONS (4)
  - HEADACHE [None]
  - LETHARGY [None]
  - MALAISE [None]
  - PAIN [None]
